FAERS Safety Report 15742156 (Version 1)
Quarter: 2018Q4

REPORT INFORMATION
  Report Type: Spontaneous
  Country: US (occurrence: US)
  Receive Date: 20181219
  Receipt Date: 20181219
  Transmission Date: 20190205
  Serious: Yes (Death, Other)
  Sender: FDA-Public Use
  Company Number: US-IMPAX LABORATORIES, LLC-2018-IPXL-04183

PATIENT

DRUGS (1)
  1. CARBIDOPA-LEVODOPA ER [Suspect]
     Active Substance: CARBIDOPA\LEVODOPA
     Indication: PARKINSON^S DISEASE
     Dosage: A MORNING DOSE/BOLUS FOLLOWED BY CONTINUOUS INFUSION FOR 16 HOURS APPROXIMATELY

REACTIONS (1)
  - Cerebrovascular accident [Fatal]
